FAERS Safety Report 5062692-6 (Version None)
Quarter: 2006Q3

REPORT INFORMATION
  Report Type: 
  Country: None (occurrence: None)
  Receive Date: 20060724
  Receipt Date: 20060724
  Transmission Date: 20061208
  Serious: Yes (Hospitalization)
  Sender: FDA-Public Use
  Company Number: None

PATIENT
  Sex: Female
  Weight: 70 kg

DRUGS (3)
  1. CARBOPLATIN [Suspect]
     Dates: start: 20060707
  2. TAXOL [Suspect]
     Dates: start: 20060707
  3. TYLENOL W/ CODEINE NO. 3 [Concomitant]

REACTIONS (1)
  - PULMONARY EMBOLISM [None]
